FAERS Safety Report 18817532 (Version 1)
Quarter: 2021Q1

REPORT INFORMATION
  Report Type: Spontaneous
  Country: US (occurrence: US)
  Receive Date: 20210201
  Receipt Date: 20210201
  Transmission Date: 20210419
  Serious: No
  Sender: FDA-Public Use
  Company Number: US-BRISTOL-MYERS SQUIBB COMPANY-BMS-2021-005125

PATIENT
  Sex: Male
  Weight: 92.52 kg

DRUGS (8)
  1. MULTI VITAMIN ONE A DAY [Concomitant]
     Indication: PRODUCT USED FOR UNKNOWN INDICATION
     Route: 065
  2. STOOL SOFTENER (DOCUSATE) [Concomitant]
     Active Substance: DOCUSATE
     Indication: PRODUCT USED FOR UNKNOWN INDICATION
     Dosage: 100 MILLIGRAM, QD
     Route: 065
  3. ELIQUIS [Suspect]
     Active Substance: APIXABAN
     Dosage: 5MG TABLET TWICE A DAY
  4. ELIQUIS [Suspect]
     Active Substance: APIXABAN
     Indication: DEEP VEIN THROMBOSIS
     Dosage: TWO 5 MG TABLETS TWICE A DAY (MORNING AND EVENING) FOR 2 WEEKS
     Route: 048
     Dates: start: 202011
  5. FISH OIL [Concomitant]
     Active Substance: FISH OIL
     Indication: PRODUCT USED FOR UNKNOWN INDICATION
     Dosage: 1000 MILLIGRAM, QD
     Route: 065
  6. VITAMIN D3 [Concomitant]
     Active Substance: CHOLECALCIFEROL
     Indication: PRODUCT USED FOR UNKNOWN INDICATION
     Dosage: 1000 INTERNATIONAL UNIT, QD
     Route: 065
  7. VITAMIN C [CALCIUM ASCORBATE] [Concomitant]
     Active Substance: CALCIUM ASCORBATE
     Indication: PRODUCT USED FOR UNKNOWN INDICATION
     Dosage: 500 MILLIGRAM, QD
     Route: 065
  8. VITAMIN B12 [Concomitant]
     Active Substance: CYANOCOBALAMIN
     Indication: PRODUCT USED FOR UNKNOWN INDICATION
     Dosage: 1000 MICROGRAM, QD
     Route: 065

REACTIONS (2)
  - Pain [Unknown]
  - Intentional product use issue [Unknown]
